FAERS Safety Report 17065282 (Version 1)
Quarter: 2019Q4

REPORT INFORMATION
  Report Type: Spontaneous
  Country: US (occurrence: US)
  Receive Date: 20191122
  Receipt Date: 20191122
  Transmission Date: 20200122
  Serious: Yes (Disabling)
  Sender: FDA-Public Use
  Company Number: None

PATIENT
  Age: 59 Year
  Sex: Male
  Weight: 63 kg

DRUGS (1)
  1. CIPROFLOXACIN. [Suspect]
     Active Substance: CIPROFLOXACIN
     Indication: URINARY TRACT INFECTION
     Dosage: ?          QUANTITY:1 TABLET(S);?
     Route: 048
     Dates: start: 20191002, end: 20191002

REACTIONS (6)
  - Fatigue [None]
  - Arthralgia [None]
  - Feeling abnormal [None]
  - Gait disturbance [None]
  - Tendon pain [None]
  - Blood magnesium decreased [None]

NARRATIVE: CASE EVENT DATE: 20191004
